FAERS Safety Report 18683091 (Version 3)
Quarter: 2021Q2

REPORT INFORMATION
  Report Type: Spontaneous
  Country: BR (occurrence: BR)
  Receive Date: 20201230
  Receipt Date: 20210401
  Transmission Date: 20210717
  Serious: Yes (Death, Hospitalization, Other)
  Sender: FDA-Public Use
  Company Number: BR-BRISTOL-MYERS SQUIBB COMPANY-BMS-2020-111719

PATIENT
  Age: 69 Year
  Sex: Male

DRUGS (2)
  1. CYCLOBENZAPRINE. [Concomitant]
     Active Substance: CYCLOBENZAPRINE
     Indication: PRODUCT USED FOR UNKNOWN INDICATION
     Dosage: UNK
     Route: 065
  2. OPDIVO [Suspect]
     Active Substance: NIVOLUMAB
     Indication: RENAL CANCER
     Dosage: 260 MILLIGRAM; EVERY 15 DYAS
     Route: 065
     Dates: start: 20200430

REACTIONS (3)
  - Off label use [Unknown]
  - Malignant neoplasm progression [Fatal]
  - Renal failure [Unknown]

NARRATIVE: CASE EVENT DATE: 20201203
